FAERS Safety Report 21267631 (Version 3)
Quarter: 2023Q1

REPORT INFORMATION
  Report Type: Spontaneous
  Country: US (occurrence: US)
  Receive Date: 20220829
  Receipt Date: 20230112
  Transmission Date: 20230417
  Serious: No
  Sender: FDA-Public Use
  Company Number: US-ALKERMES INC.-ALK-2022-004099

PATIENT
  Sex: Female
  Weight: 63.129 kg

DRUGS (1)
  1. VIVITROL [Suspect]
     Active Substance: NALTREXONE
     Indication: Alcoholism
     Dosage: 380 MILLIGRAM, QMO
     Route: 030
     Dates: start: 20220428, end: 202208

REACTIONS (2)
  - Drug ineffective [Recovering/Resolving]
  - Alcoholism [Not Recovered/Not Resolved]

NARRATIVE: CASE EVENT DATE: 20220101
